FAERS Safety Report 4512943-9 (Version None)
Quarter: 2004Q4

REPORT INFORMATION
  Report Type: 
  Country: None (occurrence: None)
  Receive Date: 20041124
  Receipt Date: 20041118
  Transmission Date: 20050328
  Serious: Yes (Hospitalization)
  Sender: FDA-Public Use
  Company Number: KII-2004-0014038

PATIENT
  Sex: Male

DRUGS (2)
  1. BUPRENORPHINE (SIMILAR TO IND 50,273) (BUPRENORPHINE) [Suspect]
  2. ALCOHOL (ETHANOL) [Suspect]

REACTIONS (3)
  - ALCOHOL WITHDRAWAL SYNDROME [None]
  - BLOOD PRESSURE SYSTOLIC INCREASED [None]
  - TREMOR [None]
